FAERS Safety Report 15883949 (Version 1)
Quarter: 2019Q1

REPORT INFORMATION
  Report Type: Spontaneous
  Country: CN (occurrence: CN)
  Receive Date: 20190129
  Receipt Date: 20190129
  Transmission Date: 20190417
  Serious: Yes (Life-Threatening)
  Sender: FDA-Public Use
  Company Number: CN-ROCHE-2250233

PATIENT
  Age: 44 Year
  Sex: Male
  Weight: 60 kg

DRUGS (17)
  1. MYCOPHENOLATE MOFETIL. [Suspect]
     Active Substance: MYCOPHENOLATE MOFETIL
     Indication: PROPHYLAXIS AGAINST TRANSPLANT REJECTION
     Dosage: STOP DATE: 10/APR
     Route: 065
  2. METHYLPREDNISOLONE. [Concomitant]
     Active Substance: METHYLPREDNISOLONE
     Dosage: FROM 10/APR TO 18/APR
     Route: 065
  3. METHYLPREDNISOLONE. [Concomitant]
     Active Substance: METHYLPREDNISOLONE
     Dosage: FROM 19/APR TO 25/APR
     Route: 065
  4. BIAPENEM [Concomitant]
     Active Substance: BIAPENEM
     Dosage: FROM 10/APR TO 18/APR
     Route: 065
  5. FLUCONAZOLE. [Concomitant]
     Active Substance: FLUCONAZOLE
     Dosage: FROM 19/APR TO 25/APR
     Route: 065
  6. CASPOFUNGIN [Concomitant]
     Active Substance: CASPOFUNGIN
     Dosage: FROM 26/APR TO 2/MAY
     Route: 065
  7. GANCICLOVIR. [Suspect]
     Active Substance: GANCICLOVIR
     Dosage: FROM 19/APR TO 25/APR
     Route: 065
  8. METHYLPREDNISOLONE. [Concomitant]
     Active Substance: METHYLPREDNISOLONE
     Indication: PROPHYLAXIS AGAINST TRANSPLANT REJECTION
     Route: 065
  9. SMZ [Concomitant]
     Active Substance: SULFAMETHOXAZOLE\TRIMETHOPRIM
     Dosage: FROM 10/APR TO 18/APR, DOSE: 0.96
     Route: 065
  10. IMIPENEM AND CILASTATIN [Concomitant]
     Active Substance: CILASTATIN SODIUM\IMIPENEM
     Dosage: FROM 26/APR TO 2/MAY
     Route: 065
  11. FK506 [Concomitant]
     Active Substance: TACROLIMUS
     Indication: PROPHYLAXIS AGAINST TRANSPLANT REJECTION
     Route: 065
  12. LINEZOLID. [Concomitant]
     Active Substance: LINEZOLID
     Dosage: FROM 26/APR TO 2/MAY, DOSE: 0.6
     Route: 065
  13. ANTITHYMOCYTE GLOBULIN [Concomitant]
     Active Substance: THYMOCYTE IMMUNE GLOBULIN NOS
     Indication: PROPHYLAXIS AGAINST TRANSPLANT REJECTION
     Dosage: 3D
     Route: 065
  14. VORICONAZOLE. [Concomitant]
     Active Substance: VORICONAZOLE
     Dosage: FROM 10/APR TO 18/APR
     Route: 065
  15. GANCICLOVIR. [Suspect]
     Active Substance: GANCICLOVIR
     Indication: PRODUCT USED FOR UNKNOWN INDICATION
     Dosage: FROM 10/APR TO 18/APR
     Route: 065
  16. METHYLPREDNISOLONE. [Concomitant]
     Active Substance: METHYLPREDNISOLONE
     Dosage: FROM 26/APR
     Route: 065
  17. MOXIFLOXACIN. [Concomitant]
     Active Substance: MOXIFLOXACIN
     Dosage: FROM 19/APR TO 25/APR
     Route: 065

REACTIONS (7)
  - Chest discomfort [Recovering/Resolving]
  - Breath sounds abnormal [Unknown]
  - Dyspnoea [Unknown]
  - Cough [Recovering/Resolving]
  - Altered state of consciousness [Unknown]
  - Pyrexia [Recovered/Resolved]
  - Tonsillar hypertrophy [Unknown]
